FAERS Safety Report 24128152 (Version 1)
Quarter: 2024Q3

REPORT INFORMATION
  Report Type: Spontaneous
  Country: US (occurrence: None)
  Receive Date: 20240722
  Receipt Date: 20240722
  Transmission Date: 20241017
  Serious: Yes (Other)
  Sender: Public
  Company Number: None

PATIENT
  Age: 73 Month
  Sex: Male
  Weight: 67.5 kg

DRUGS (5)
  1. ENTRESTO [Suspect]
     Active Substance: SACUBITRIL\VALSARTAN
     Indication: Cardiac disorder
     Dosage: OTHER QUANTITY : 26 TABLET(S);?
     Route: 048
  2. FARXIGA [Concomitant]
  3. Entreaties [Concomitant]
  4. Aspirin [Concomitant]
  5. Saw Palmetoo [Concomitant]

REACTIONS (2)
  - Blood pressure decreased [None]
  - Dizziness [None]

NARRATIVE: CASE EVENT DATE: 20240721
